FAERS Safety Report 24369540 (Version 1)
Quarter: 2024Q3

REPORT INFORMATION
  Report Type: Spontaneous
  Country: AU (occurrence: AU)
  Receive Date: 20240927
  Receipt Date: 20240927
  Transmission Date: 20241017
  Serious: Yes (Other)
  Sender: CIPLA
  Company Number: AU-CIPLA LTD.-2024AU10586

PATIENT

DRUGS (3)
  1. ALBUTEROL [Suspect]
     Active Substance: ALBUTEROL
     Indication: Product used for unknown indication
     Dosage: INHALER (INHALATION POWDER)
     Route: 065
  2. VENTOLIN [Suspect]
     Active Substance: ALBUTEROL SULFATE
     Indication: Product used for unknown indication
     Dosage: UNK
     Route: 065
  3. VENTOLIN [Suspect]
     Active Substance: ALBUTEROL SULFATE
     Dosage: UNK
     Route: 065

REACTIONS (11)
  - Lower respiratory tract infection [Unknown]
  - Cough [Unknown]
  - Malaise [Unknown]
  - Illness [Unknown]
  - Dysgeusia [Unknown]
  - Extra dose administered [Unknown]
  - Product complaint [Unknown]
  - Anxiety [Unknown]
  - Tinnitus [Unknown]
  - Hypersensitivity [Unknown]
  - Tachycardia [Recovered/Resolved]
